FAERS Safety Report 9535592 (Version 2)
Quarter: 2013Q3

REPORT INFORMATION
  Report Type: Spontaneous
  Country: US (occurrence: US)
  Receive Date: 20130919
  Receipt Date: 20130919
  Transmission Date: 20140515
  Serious: Yes (Other)
  Sender: FDA-Public Use
  Company Number: US-AMGEN-USASP2013034474

PATIENT
  Age: 73 Year
  Sex: Male
  Weight: 77.1 kg

DRUGS (14)
  1. ENBREL [Suspect]
     Indication: RHEUMATOID ARTHRITIS
     Dosage: 50 MG, QWK
     Route: 058
  2. CENTRUM SILVER                     /02363801/ [Concomitant]
     Dosage: UNK
  3. ATARAX                             /00058401/ [Concomitant]
     Dosage: 10 MG / 5 ML  UNK
  4. METHOTREXATE [Concomitant]
     Dosage: 2.5 MG, UNK
  5. ATENOLOL [Concomitant]
     Dosage: 50 MG, UNK
  6. ALENDRONATE [Concomitant]
     Dosage: 10 MG, UNK
  7. PRILOSEC                           /00661201/ [Concomitant]
     Dosage: 10 MG, UNK
  8. NAMENDA [Concomitant]
     Dosage: 5 MG, UNK
  9. CALCIUM 600 + D [Concomitant]
     Dosage: UNK
  10. FOLIC ACID [Concomitant]
     Dosage: 800 MUG, UNK
  11. FIBER [Concomitant]
     Dosage: 625 MG, UNK
  12. VITAMIN D3 [Concomitant]
     Dosage: 2000 IU, UNK
  13. CARBIDOPA/LEVODOPA [Concomitant]
     Dosage: UNK ER 25/100
  14. ASPIRIN CHILDREN [Concomitant]
     Dosage: 81 MG, UNK

REACTIONS (2)
  - Prostate cancer [Unknown]
  - Eyelid ptosis [Unknown]
